FAERS Safety Report 7779541-5 (Version None)
Quarter: 2011Q3

REPORT INFORMATION
  Report Type: 
  Country: None (occurrence: None)
  Receive Date: 20110927
  Receipt Date: 20110924
  Transmission Date: 20111222
  Serious: Yes (Hospitalization)
  Sender: FDA-Public Use
  Company Number: US-BAYER-2011-090659

PATIENT
  Age: 50 Year
  Sex: Male

DRUGS (2)
  1. NEXAVAR [Suspect]
     Indication: HEPATIC NEOPLASM MALIGNANT NON-RESECTABLE
     Dosage: 400 MG
     Route: 048
  2. NEXAVAR [Suspect]
     Dosage: 400 MG, NASOGASTRIC TUBE
     Route: 050

REACTIONS (1)
  - MYOCARDIAL INFARCTION [None]
